FAERS Safety Report 12331209 (Version 1)
Quarter: 2016Q2

REPORT INFORMATION
  Report Type: Spontaneous
  Country: US (occurrence: US)
  Receive Date: 20160504
  Receipt Date: 20160504
  Transmission Date: 20160815
  Serious: No
  Sender: FDA-Public Use
  Company Number: US-ENDO PHARMACEUTICALS INC.-2016-001502

PATIENT
  Sex: Male
  Weight: 81.72 kg

DRUGS (6)
  1. VISTARIL [Concomitant]
     Active Substance: HYDROXYZINE PAMOATE
     Indication: PRODUCT USED FOR UNKNOWN INDICATION
  2. DIAZEPAM 10MG [Suspect]
     Active Substance: DIAZEPAM
     Indication: PANIC ATTACK
     Route: 048
     Dates: start: 2015
  3. DIAZEPAM 10MG [Suspect]
     Active Substance: DIAZEPAM
     Indication: MUSCLE TIGHTNESS
  4. REMERON [Concomitant]
     Active Substance: MIRTAZAPINE
     Indication: ANXIETY
  5. ROZEREM [Concomitant]
     Active Substance: RAMELTEON
     Indication: PRODUCT USED FOR UNKNOWN INDICATION
  6. DIAZEPAM 10MG [Suspect]
     Active Substance: DIAZEPAM
     Indication: ANXIETY
     Route: 048
     Dates: end: 20151022

REACTIONS (4)
  - Off label use [Not Recovered/Not Resolved]
  - Drug ineffective [Recovered/Resolved]
  - Product physical issue [Unknown]
  - Abdominal discomfort [Recovered/Resolved]
